FAERS Safety Report 24194866 (Version 1)
Quarter: 2024Q3

REPORT INFORMATION
  Report Type: Spontaneous
  Country: US (occurrence: US)
  Receive Date: 20240809
  Receipt Date: 20240809
  Transmission Date: 20241016
  Serious: No
  Sender: ASTELLAS
  Company Number: US-ASTELLAS-2024US018676

PATIENT
  Age: 83 Year
  Sex: Female

DRUGS (10)
  1. IZERVAY [Suspect]
     Active Substance: AVACINCAPTAD PEGOL SODIUM
     Indication: Product used for unknown indication
     Dosage: 2 MG, EVERY 5 WEEKS OD=RIGHT EYE
     Route: 050
     Dates: start: 202401, end: 202401
  2. IZERVAY [Suspect]
     Active Substance: AVACINCAPTAD PEGOL SODIUM
     Indication: Product used for unknown indication
     Dosage: 2 MG, EVERY 5 WEEKS OD=RIGHT EYE
     Route: 050
     Dates: start: 202401, end: 202401
  3. IZERVAY [Suspect]
     Active Substance: AVACINCAPTAD PEGOL SODIUM
     Indication: Product used for unknown indication
     Dosage: 2 MG, EVERY 5 WEEKS OD=RIGHT EYE
     Route: 050
     Dates: start: 202401, end: 202401
  4. IZERVAY [Suspect]
     Active Substance: AVACINCAPTAD PEGOL SODIUM
     Indication: Product used for unknown indication
     Dosage: 2 MG, EVERY 5 WEEKS OD=RIGHT EYE
     Route: 050
     Dates: start: 202401, end: 202401
  5. IZERVAY [Suspect]
     Active Substance: AVACINCAPTAD PEGOL SODIUM
     Indication: Product used for unknown indication
     Dosage: 2 MG, EVERY 5 WEEKS OD=RIGHT EYE
     Route: 050
     Dates: start: 202401, end: 202401
  6. IZERVAY [Suspect]
     Active Substance: AVACINCAPTAD PEGOL SODIUM
     Dosage: 2 MG, EVERY 5 WEEKS OD=RIGHT EYE
     Route: 050
     Dates: start: 20240127, end: 20240127
  7. IZERVAY [Suspect]
     Active Substance: AVACINCAPTAD PEGOL SODIUM
     Dosage: 2 MG, EVERY 5 WEEKS OD=RIGHT EYE
     Route: 050
     Dates: start: 20240127, end: 20240127
  8. IZERVAY [Suspect]
     Active Substance: AVACINCAPTAD PEGOL SODIUM
     Dosage: 2 MG, EVERY 5 WEEKS OD=RIGHT EYE
     Route: 050
     Dates: start: 20240127, end: 20240127
  9. IZERVAY [Suspect]
     Active Substance: AVACINCAPTAD PEGOL SODIUM
     Dosage: 2 MG, EVERY 5 WEEKS OD=RIGHT EYE
     Route: 050
     Dates: start: 20240127, end: 20240127
  10. IZERVAY [Suspect]
     Active Substance: AVACINCAPTAD PEGOL SODIUM
     Dosage: 2 MG, EVERY 5 WEEKS OD=RIGHT EYE
     Route: 050
     Dates: start: 20240127, end: 20240127

REACTIONS (1)
  - Eye disorder [Unknown]

NARRATIVE: CASE EVENT DATE: 20240627
